FAERS Safety Report 17300136 (Version 2)
Quarter: 2020Q1

REPORT INFORMATION
  Report Type: Spontaneous
  Country: BE (occurrence: BE)
  Receive Date: 20200122
  Receipt Date: 20200213
  Transmission Date: 20200409
  Serious: Yes (Disabling)
  Sender: FDA-Public Use
  Company Number: BE-PFIZER INC-2020024339

PATIENT
  Sex: Female

DRUGS (2)
  1. IBRANCE [Suspect]
     Active Substance: PALBOCICLIB
     Indication: NEOPLASM MALIGNANT
     Dosage: UNK
  2. CIPROFLOXACINE [CIPROFLOXACIN HYDROCHLORIDE] [Suspect]
     Active Substance: CIPROFLOXACIN HYDROCHLORIDE
     Indication: CYSTITIS
     Dosage: UNK

REACTIONS (6)
  - Arthralgia [Recovering/Resolving]
  - Myalgia [Recovering/Resolving]
  - Musculoskeletal pain [Recovering/Resolving]
  - Muscle spasms [Recovering/Resolving]
  - Cystitis [Unknown]
  - Neck pain [Recovering/Resolving]
